FAERS Safety Report 8836264 (Version 5)
Quarter: 2015Q2

REPORT INFORMATION
  Report Type: Report from Study
  Country: JP (occurrence: JP)
  Receive Date: 20121011
  Receipt Date: 20150616
  Transmission Date: 20150821
  Serious: Yes (Hospitalization, Other)
  Sender: FDA-Public Use
  Company Number: PHHY2011JP098056

PATIENT
  Age: 35 Year
  Sex: Female

DRUGS (37)
  1. CLOZARIL [Suspect]
     Active Substance: CLOZAPINE
     Dosage: 175 MG, QD
     Route: 048
     Dates: start: 20110811, end: 20110815
  2. CLOZARIL [Suspect]
     Active Substance: CLOZAPINE
     Dosage: 500 MG, QD
     Route: 048
     Dates: start: 20111115, end: 20111128
  3. LEVOMEPROMAZINE MALEATE [Concomitant]
     Active Substance: LEVOMEPROMAZINE MALEATE
     Indication: SCHIZOPHRENIA, PARANOID TYPE
     Dosage: 50 MG, QD
     Route: 048
     Dates: start: 20110726, end: 20110726
  4. HALOPERIDOL. [Concomitant]
     Active Substance: HALOPERIDOL
     Dosage: 6.6 MG, QD
     Route: 048
     Dates: start: 20110811
  5. RISPERDAL [Concomitant]
     Active Substance: RISPERIDONE
     Dosage: 6 MG, QD
     Route: 048
     Dates: start: 20110816, end: 20110817
  6. OLANZAPINE. [Concomitant]
     Active Substance: OLANZAPINE
     Dosage: 10 MG, QD
     Route: 048
     Dates: start: 20110816, end: 20110822
  7. CLOZARIL [Suspect]
     Active Substance: CLOZAPINE
     Dosage: 125 MG, QD
     Route: 048
     Dates: start: 20110804, end: 20110808
  8. CLOZARIL [Suspect]
     Active Substance: CLOZAPINE
     Dosage: 400 MG, QD
     Route: 048
     Dates: start: 20110822, end: 20110825
  9. CLOZARIL [Suspect]
     Active Substance: CLOZAPINE
     Dosage: 600 MG, QD
     Route: 048
     Dates: start: 20111129, end: 20120229
  10. RISPERDAL [Concomitant]
     Active Substance: RISPERIDONE
     Indication: SCHIZOPHRENIA, PARANOID TYPE
     Dosage: 12 MG, QD
     Route: 048
     Dates: start: 20110726, end: 20110815
  11. OLANZAPINE. [Concomitant]
     Active Substance: OLANZAPINE
     Indication: SCHIZOPHRENIA, PARANOID TYPE
     Dosage: 20 MG, QD
     Route: 048
     Dates: start: 20110726, end: 20110815
  12. OLANZAPINE. [Concomitant]
     Active Substance: OLANZAPINE
     Dosage: 20 MG, QD
     Route: 048
     Dates: start: 20110823
  13. CLOZARIL [Suspect]
     Active Substance: CLOZAPINE
     Indication: SCHIZOPHRENIA, PARANOID TYPE
     Dosage: 12.5 MG, QD
     Route: 048
     Dates: start: 20110726, end: 20110726
  14. HALOPERIDOL. [Concomitant]
     Active Substance: HALOPERIDOL
     Indication: SCHIZOPHRENIA, PARANOID TYPE
     Dosage: 6.6 MG, QD
     Route: 048
     Dates: start: 20110726, end: 20110808
  15. HALOPERIDOL. [Concomitant]
     Active Substance: HALOPERIDOL
     Dosage: 3.3 MG, QD
     Route: 048
     Dates: start: 20110809, end: 20110810
  16. LITHIUM CARBONATE. [Concomitant]
     Active Substance: LITHIUM CARBONATE
     Indication: WHITE BLOOD CELL COUNT DECREASED
     Dosage: 800 MG, UNK
     Route: 048
  17. SENNOSIDE [Concomitant]
     Active Substance: SENNOSIDES
     Indication: ILEUS
     Dosage: 48 MG
     Route: 048
     Dates: start: 20120306
  18. CLOZARIL [Suspect]
     Active Substance: CLOZAPINE
     Dosage: 50 MG, QD
     Route: 048
     Dates: start: 20110728, end: 20110801
  19. PURSENNID [Suspect]
     Active Substance: SENNOSIDES A AND B
     Dosage: 48 MG
     Route: 048
     Dates: start: 20111014
  20. LEVOMEPROMAZINE MALEATE [Concomitant]
     Active Substance: LEVOMEPROMAZINE MALEATE
     Dosage: 25 MG, QD
     Route: 048
     Dates: start: 20110727, end: 20110727
  21. LIMAS [Concomitant]
     Active Substance: LITHIUM CARBONATE
     Indication: SCHIZOPHRENIA, PARANOID TYPE
     Dosage: 400 MG
     Route: 048
     Dates: start: 20120127
  22. CLOZARIL [Suspect]
     Active Substance: CLOZAPINE
     Dosage: 600 MG, QD
     Route: 048
     Dates: start: 20110830, end: 20111114
  23. CLOZARIL [Suspect]
     Active Substance: CLOZAPINE
     Dosage: 600 MG, QD
     Route: 048
     Dates: start: 20120306
  24. PURSENNID [Suspect]
     Active Substance: SENNOSIDES A AND B
     Indication: CONSTIPATION
     Dosage: 24 MG
     Route: 048
     Dates: start: 20110726, end: 20111006
  25. VEGETAMIN A [Concomitant]
     Active Substance: CHLORPROMAZINE HYDROCHLORIDE\PHENOBARBITAL\PROMETHAZINE
     Indication: INSOMNIA
     Dosage: 1 DF
     Route: 048
     Dates: start: 20110726, end: 20110801
  26. CHLORPROMAZINE [Concomitant]
     Active Substance: CHLORPROMAZINE
     Indication: SCHIZOPHRENIA, PARANOID TYPE
     Dosage: 25 MG
     Route: 048
     Dates: start: 20110726, end: 20110801
  27. LEVOMEPROMAZINE MALEATE [Concomitant]
     Active Substance: LEVOMEPROMAZINE MALEATE
     Dosage: 50 MG, QD
     Route: 048
     Dates: start: 20110727
  28. CLOZARIL [Suspect]
     Active Substance: CLOZAPINE
     Dosage: 25 MG, QD
     Route: 048
     Dates: start: 20110727, end: 20110727
  29. CLOZARIL [Suspect]
     Active Substance: CLOZAPINE
     Dosage: 100 MG, QD
     Route: 048
     Dates: start: 20110802, end: 20110803
  30. CLOZARIL [Suspect]
     Active Substance: CLOZAPINE
     Dosage: 300 MG, QD
     Route: 048
     Dates: start: 20110818, end: 20110821
  31. RISPERDAL [Concomitant]
     Active Substance: RISPERIDONE
     Dosage: 12 MG, QD
     Route: 048
     Dates: start: 20110818
  32. CLOZARIL [Suspect]
     Active Substance: CLOZAPINE
     Dosage: 150 MG, QD
     Route: 048
     Dates: start: 20110809, end: 20110810
  33. CLOZARIL [Suspect]
     Active Substance: CLOZAPINE
     Dosage: 200 MG, QD
     Route: 048
     Dates: start: 20110816, end: 20110817
  34. CLOZARIL [Suspect]
     Active Substance: CLOZAPINE
     Dosage: 500 MG, QD
     Route: 048
     Dates: start: 20110826, end: 20110829
  35. CLOZARIL [Suspect]
     Active Substance: CLOZAPINE
     Dosage: UNK
  36. PURSENNID [Suspect]
     Active Substance: SENNOSIDES A AND B
     Dosage: 36 MG
     Route: 048
     Dates: start: 20111007, end: 20111013
  37. MAGNESIUM OXIDE. [Concomitant]
     Active Substance: MAGNESIUM OXIDE
     Indication: ILEUS
     Dosage: 2000 MG, UNK
     Route: 048
     Dates: start: 20120306

REACTIONS (12)
  - Seizure [Recovered/Resolved]
  - Tonic convulsion [Recovered/Resolved]
  - Neutropenia [Recovered/Resolved]
  - Incontinence [Not Recovered/Not Resolved]
  - Constipation [Not Recovered/Not Resolved]
  - Salivary hypersecretion [Not Recovered/Not Resolved]
  - Loss of consciousness [Unknown]
  - White blood cell count abnormal [Recovered/Resolved]
  - Loss of consciousness [Recovered/Resolved]
  - Heart rate increased [Not Recovered/Not Resolved]
  - Fall [Unknown]
  - Drug effect incomplete [Unknown]

NARRATIVE: CASE EVENT DATE: 20110816
